FAERS Safety Report 10573719 (Version 2)
Quarter: 2014Q4

REPORT INFORMATION
  Report Type: Report from Study
  Country: US (occurrence: US)
  Receive Date: 20141110
  Receipt Date: 20141204
  Transmission Date: 20150529
  Serious: Yes (Other)
  Sender: FDA-Public Use
  Company Number: US-JNJFOC-20141101285

PATIENT
  Age: 37 Year
  Sex: Female
  Weight: 54.43 kg

DRUGS (4)
  1. SOVALDI [Suspect]
     Active Substance: SOFOSBUVIR
     Indication: HEPATITIS C
     Route: 048
     Dates: start: 20141013
  2. ADDERALL [Concomitant]
     Active Substance: AMPHETAMINE ASPARTATE\AMPHETAMINE SULFATE\DEXTROAMPHETAMINE SACCHARATE\DEXTROAMPHETAMINE SULFATE
     Indication: ATTENTION DEFICIT/HYPERACTIVITY DISORDER
     Route: 048
  3. OLYSIO [Suspect]
     Active Substance: SIMEPREVIR
     Indication: HEPATITIS C
     Route: 048
     Dates: start: 20141013
  4. NAPROXEN. [Concomitant]
     Active Substance: NAPROXEN
     Indication: PAIN
     Route: 048

REACTIONS (4)
  - Insomnia [Recovered/Resolved]
  - Muscle spasms [Not Recovered/Not Resolved]
  - Nausea [Not Recovered/Not Resolved]
  - Off label use [Not Recovered/Not Resolved]

NARRATIVE: CASE EVENT DATE: 201410
